FAERS Safety Report 21482575 (Version 2)
Quarter: 2022Q4

REPORT INFORMATION
  Report Type: Spontaneous
  Country: EG (occurrence: EG)
  Receive Date: 20221020
  Receipt Date: 20221031
  Transmission Date: 20230113
  Serious: No
  Sender: FDA-Public Use
  Company Number: EG-NOVOPROD-968928

PATIENT
  Sex: Female
  Weight: 113 kg

DRUGS (6)
  1. SAXENDA [Concomitant]
     Active Substance: LIRAGLUTIDE
     Indication: Weight decreased
     Dosage: 1.8 MG
     Route: 058
  2. ACTRAPID [Suspect]
     Active Substance: INSULIN HUMAN
     Indication: Type 2 diabetes mellitus
     Dosage: 30 IU, QD (15 U BEFORE BREAKFAST AND 15 U BEFORE LUNCH)
     Route: 058
  3. TRESIBA [Concomitant]
     Active Substance: INSULIN DEGLUDEC
     Indication: Type 2 diabetes mellitus
     Dosage: 40 IU, QD (NIGHT BEFORE SLEEPING)
     Route: 058
  4. GLUCOPHAGE [Concomitant]
     Active Substance: METFORMIN HYDROCHLORIDE
     Indication: Type 2 diabetes mellitus
     Dosage: 2 TABLETS ONE AFTER BREAKFAST AND ONE AFTER LUNCH
  5. ERASTAPEX [Concomitant]
     Indication: Hypertension
     Dosage: ONE TABLET AT MORNING
  6. CONCOR 5 PLUS [Concomitant]
     Indication: Hypertension
     Dosage: ONE TABLET AT NIGHT

REACTIONS (3)
  - Cataract [Not Recovered/Not Resolved]
  - Retinal degeneration [Not Recovered/Not Resolved]
  - Retinal infiltrates [Not Recovered/Not Resolved]

NARRATIVE: CASE EVENT DATE: 20140101
